FAERS Safety Report 9854910 (Version 1)
Quarter: 2013Q4

REPORT INFORMATION
  Report Type: Spontaneous
  Country: US (occurrence: None)
  Receive Date: 20131226
  Receipt Date: 20131226
  Transmission Date: 20140711
  Serious: Yes (Other)
  Sender: FDA-Public Use
  Company Number: PHEH2012US024495

PATIENT
  Age: 44 Year
  Sex: Female

DRUGS (1)
  1. EXFORGE (VALSARTAN, AMLODIPINE) UNKNOWN [Suspect]

REACTIONS (1)
  - Hypertension [None]
